FAERS Safety Report 8983995 (Version 1)
Quarter: 2012Q4

REPORT INFORMATION
  Report Type: Spontaneous
  Country: US (occurrence: None)
  Receive Date: 20121218
  Receipt Date: 20121218
  Transmission Date: 20130627
  Serious: Yes (Death)
  Sender: FDA-Public Use
  Company Number: None

PATIENT
  Age: 77 Year
  Sex: Male

DRUGS (1)
  1. STIVARGA [Suspect]
     Indication: RECTAL CANCER
     Route: 048
     Dates: start: 20121121, end: 20121207

REACTIONS (2)
  - Rectal cancer [None]
  - Malignant neoplasm progression [None]
